FAERS Safety Report 15760717 (Version 2)
Quarter: 2019Q1

REPORT INFORMATION
  Report Type: Spontaneous
  Country: US (occurrence: US)
  Receive Date: 20181226
  Receipt Date: 20190128
  Transmission Date: 20190417
  Serious: No
  Sender: FDA-Public Use
  Company Number: US-PFIZER INC-2018526975

PATIENT
  Age: 66 Year
  Sex: Female
  Weight: 104.31 kg

DRUGS (3)
  1. GABAPENTIN. [Suspect]
     Active Substance: GABAPENTIN
     Indication: RADICULOPATHY
     Dosage: 300 MG, 1X/DAY (1 WEEK THEN)
     Route: 048
     Dates: start: 20180705
  2. GABAPENTIN. [Suspect]
     Active Substance: GABAPENTIN
     Dosage: 300 MG, 3X/DAY (OVER 2 WK TIME FRAME)
     Route: 048
     Dates: end: 20181207
  3. GABAPENTIN. [Suspect]
     Active Substance: GABAPENTIN
     Dosage: 300 MG, 2X/DAY ( 1 WEEK THEN)
     Route: 048

REACTIONS (5)
  - Drug hypersensitivity [Unknown]
  - Tremor [Recovering/Resolving]
  - Product use in unapproved indication [Unknown]
  - Oedema [Recovering/Resolving]
  - Swelling [Unknown]
